FAERS Safety Report 14145842 (Version 1)
Quarter: 2017Q4

REPORT INFORMATION
  Report Type: Report from Study
  Country: US (occurrence: US)
  Receive Date: 20171031
  Receipt Date: 20171031
  Transmission Date: 20180321
  Serious: Yes (Hospitalization, Other)
  Sender: FDA-Public Use
  Company Number: US-SEBELA IRELAND LIMITED-2017SEB00441

PATIENT
  Age: 60 Year
  Sex: Female
  Weight: 64.4 kg

DRUGS (25)
  1. CLOPIDOGREL [Concomitant]
     Active Substance: CLOPIDOGREL BISULFATE
     Dosage: 75 MG, 1X/DAY
  2. HUMIRA [Suspect]
     Active Substance: ADALIMUMAB
     Indication: ARTHRITIS
     Dosage: 40 MG, 2X/MONTH
     Route: 058
     Dates: start: 20110101
  3. PREDNISONE. [Suspect]
     Active Substance: PREDNISONE
     Dosage: 5 MG, 1X/DAY
  4. LEVOTHYROXINE. [Concomitant]
     Active Substance: LEVOTHYROXINE
     Dosage: 75 ?G, 1X/DAY
     Dates: start: 20120613, end: 20150326
  5. OSCAL [Concomitant]
     Active Substance: CALCIUM CARBONATE
     Dosage: 500 MG, EVERY 48 HOURS
  6. L-THYROXIN [Concomitant]
     Active Substance: LEVOTHYROXINE SODIUM
     Dosage: 50 ?G, 1X/DAY
     Dates: start: 20120613, end: 20150326
  7. POTASSIUM [Concomitant]
     Active Substance: POTASSIUM
     Dosage: 1 TABLETS, 1X/DAY
     Dates: start: 20130610, end: 20140225
  8. HUMIRA [Suspect]
     Active Substance: ADALIMUMAB
     Dosage: 40 MG, 2X/MONTH
     Route: 058
     Dates: start: 20120517, end: 20170101
  9. METOPROLOL TARTRATE. [Concomitant]
     Active Substance: METOPROLOL TARTRATE
     Dosage: 200 MG, 1X/DAY
  10. URSODIOL. [Concomitant]
     Active Substance: URSODIOL
     Dosage: 900 MG, 1X/DAY
  11. PNEUMO [Concomitant]
  12. HUMIRA [Suspect]
     Active Substance: ADALIMUMAB
     Dosage: 40 MG, 2X/MONTH
     Route: 058
     Dates: start: 20170511
  13. KLOR-CON [Concomitant]
     Active Substance: POTASSIUM CHLORIDE
  14. CALCIUM GLUCONATE. [Concomitant]
     Active Substance: CALCIUM GLUCONATE
  15. DEXTRAN 40 WITH HYPROMELLOSE (MOISTURE) [Concomitant]
  16. PANTOPRAZOLE [Concomitant]
     Active Substance: PANTOPRAZOLE
  17. CEFTRIAXONE. [Concomitant]
     Active Substance: CEFTRIAXONE
  18. HYDROCHLOROTHIAZIDE. [Concomitant]
     Active Substance: HYDROCHLOROTHIAZIDE
     Dosage: 25 MG, 1X/DAY
  19. ATORVASTATIN [Concomitant]
     Active Substance: ATORVASTATIN
     Dosage: 20 MG, 1X/DAY
     Route: 048
  20. VITAMIN D3 [Concomitant]
     Active Substance: CHOLECALCIFEROL
  21. POTASSIUM CHLORIDE. [Concomitant]
     Active Substance: POTASSIUM CHLORIDE
  22. VITAMIN D [Concomitant]
     Active Substance: CHOLECALCIFEROL
  23. IMURAN [Suspect]
     Active Substance: AZATHIOPRINE
     Dosage: UNK
     Route: 048
     Dates: start: 20120612, end: 20121211
  24. HYDROCORTISONE. [Concomitant]
     Active Substance: HYDROCORTISONE
  25. MULTIVITAMIN [Concomitant]
     Active Substance: VITAMINS

REACTIONS (38)
  - Asthenia [Unknown]
  - Gastric infection [Recovered/Resolved]
  - Osteoporosis [Unknown]
  - Dysarthria [Unknown]
  - Aphasia [Unknown]
  - Liver function test increased [Unknown]
  - Hypokalaemia [Unknown]
  - Cerebrovascular accident [Unknown]
  - Arteriovenous malformation [Unknown]
  - Osteopenia [Unknown]
  - Stomatitis [Unknown]
  - Hypomagnesaemia [Unknown]
  - Carotid artery occlusion [Recovered/Resolved]
  - Dehydration [Unknown]
  - Biliary cirrhosis primary [Unknown]
  - Anaemia [Unknown]
  - Essential hypertension [Unknown]
  - Poor peripheral circulation [Unknown]
  - Vitamin D deficiency [Recovered/Resolved]
  - Troponin increased [Unknown]
  - Synovitis [Unknown]
  - Pyrexia [Unknown]
  - Renal injury [Unknown]
  - Nocturia [Unknown]
  - Joint range of motion decreased [Unknown]
  - Visual impairment [Unknown]
  - Cerebral infarction [Unknown]
  - Polyarthritis [Unknown]
  - Hypothyroidism [Unknown]
  - Memory impairment [Unknown]
  - Increased tendency to bruise [Unknown]
  - Paranasal sinus discomfort [Unknown]
  - Confusional state [Unknown]
  - Autoimmune hepatitis [Unknown]
  - Peripheral circulatory failure [Unknown]
  - Gastroenteritis [Unknown]
  - Weight decreased [Unknown]
  - Peripheral swelling [Unknown]

NARRATIVE: CASE EVENT DATE: 201503
